FAERS Safety Report 25078036 (Version 2)
Quarter: 2025Q2

REPORT INFORMATION
  Report Type: Spontaneous
  Country: FR (occurrence: FR)
  Receive Date: 20250314
  Receipt Date: 20250520
  Transmission Date: 20250716
  Serious: Yes (Hospitalization, Other)
  Sender: AUROBINDO
  Company Number: FR-AFSSAPS-PP2024001221

PATIENT
  Age: 80 Year
  Sex: Male
  Weight: 77 kg

DRUGS (2)
  1. PREDNISONE [Suspect]
     Active Substance: PREDNISONE
     Indication: Muscular weakness
     Dosage: 10 MILLIGRAM, ONCE A DAY
     Route: 048
     Dates: start: 20240628, end: 20240921
  2. ZILUCOPLAN SODIUM [Suspect]
     Active Substance: ZILUCOPLAN SODIUM
     Indication: Muscular weakness
     Route: 058
     Dates: start: 20240817, end: 20240920

REACTIONS (3)
  - Myasthenia gravis [Recovered/Resolved]
  - Product supply issue [Recovered/Resolved]
  - Product prescribing error [Recovered/Resolved]

NARRATIVE: CASE EVENT DATE: 20240920
